FAERS Safety Report 7148396-4 (Version None)
Quarter: 2010Q4

REPORT INFORMATION
  Report Type: 
  Country: None (occurrence: None)
  Receive Date: 20101209
  Receipt Date: 20101129
  Transmission Date: 20110411
  Serious: Yes (Hospitalization, Other)
  Sender: FDA-Public Use
  Company Number: US-ELI_LILLY_AND_COMPANY-US200903003322

PATIENT
  Sex: Female
  Weight: 90.703 kg

DRUGS (25)
  1. BYETTA [Suspect]
     Dosage: UNK, UNKNOWN
     Route: 065
     Dates: start: 20060119, end: 20070301
  2. OMEPRAZOLE [Concomitant]
     Dosage: 20 MG, DAILY (1/D)
  3. ENTERIC ASPIRIN [Concomitant]
     Indication: PAIN
     Dosage: 325 MG, DAILY (1/D)
  4. KLONOPIN [Concomitant]
  5. LOPID [Concomitant]
     Indication: PAIN
     Dosage: 600 MG, 2/D
  6. VYTORIN [Concomitant]
     Indication: BLOOD CHOLESTEROL INCREASED
     Dosage: UNK, DAILY (1/D)
  7. COZAAR [Concomitant]
     Indication: HYPERTENSION
     Dosage: 100 MG, DAILY (1/D)
  8. LORCET-HD [Concomitant]
     Indication: PAIN
     Dosage: UNK, AS NEEDED
  9. NEURONTIN [Concomitant]
     Indication: ANXIETY
     Dosage: 400 MG, 2/D
  10. SKELAXIN [Concomitant]
     Indication: MUSCLE RELAXANT THERAPY
     Dosage: 800 MG, 3/D
  11. GLUCOPHAGE [Concomitant]
     Indication: TYPE 2 DIABETES MELLITUS
     Dosage: 1000 MG, 2/D
  12. GLUCOPHAGE [Concomitant]
     Dosage: 500 MG, UNK
  13. LASIX [Concomitant]
     Indication: FLUID RETENTION
     Dosage: 40 MG, DAILY (1/D)
  14. CLARITIN [Concomitant]
     Indication: SEASONAL ALLERGY
     Dosage: UNK, DAILY (1/D)
  15. BUSPAR [Concomitant]
     Indication: ANXIETY
     Dosage: 15 MG, 2/D
  16. ULTRAM [Concomitant]
     Indication: PAIN
     Dosage: 50 MG, AS NEEDED
  17. CELEXA [Concomitant]
     Dosage: 20 MG, DAILY (1/D)
  18. COREG [Concomitant]
     Indication: HYPERTENSION
  19. TRIAMTERENE AND HYDROCHLOROTHIAZIDE [Concomitant]
     Indication: HYPERTENSION
  20. ALLOPURINOL [Concomitant]
     Indication: GOUT
  21. PAXIL [Concomitant]
     Indication: DEPRESSION
  22. ZETIA [Concomitant]
     Indication: BLOOD CHOLESTEROL INCREASED
  23. ZOCOR [Concomitant]
     Indication: BLOOD CHOLESTEROL INCREASED
  24. ALBUTEROL [Concomitant]
     Indication: ASTHMA
  25. MAXZIDE [Concomitant]
     Indication: HYPERTENSION

REACTIONS (11)
  - ACQUIRED DIAPHRAGMATIC EVENTRATION [None]
  - ANAEMIA [None]
  - CARDIAC DISORDER [None]
  - CHOLECYSTITIS CHRONIC [None]
  - FLANK PAIN [None]
  - NAUSEA [None]
  - NEPHROLITHIASIS [None]
  - PANCREATITIS [None]
  - RENAL COLIC [None]
  - RENAL FAILURE [None]
  - VOMITING [None]
